FAERS Safety Report 22362164 (Version 1)
Quarter: 2023Q2

REPORT INFORMATION
  Report Type: Spontaneous
  Country: US (occurrence: US)
  Receive Date: 20230524
  Receipt Date: 20230524
  Transmission Date: 20230722
  Serious: No
  Sender: FDA-Public Use
  Company Number: US-Blueprint Medicines Corporation-1159

PATIENT
  Sex: Female

DRUGS (1)
  1. AYVAKIT [Suspect]
     Active Substance: AVAPRITINIB
     Indication: Systemic mastocytosis
     Route: 065
     Dates: start: 20230202

REACTIONS (6)
  - Haemoglobin increased [Unknown]
  - Renal disorder [Unknown]
  - Gastric disorder [Unknown]
  - Arthralgia [Unknown]
  - Bone pain [Unknown]
  - Throat irritation [Unknown]
